FAERS Safety Report 6323767-4 (Version None)
Quarter: 2009Q3

REPORT INFORMATION
  Report Type: 
  Country: None (occurrence: None)
  Receive Date: 20090824
  Receipt Date: 20090407
  Transmission Date: 20100115
  Serious: No
  Sender: FDA-Public Use
  Company Number: US-ABBOTT-09P-163-0566902-00

PATIENT
  Sex: Female

DRUGS (10)
  1. NIASPAN [Suspect]
     Indication: DRUG USE FOR UNKNOWN INDICATION
     Dates: start: 20090301
  2. LESCOL XL [Concomitant]
     Indication: DRUG USE FOR UNKNOWN INDICATION
  3. ASPIRIN [Concomitant]
     Indication: DRUG USE FOR UNKNOWN INDICATION
  4. PLAVIX [Concomitant]
     Indication: DRUG USE FOR UNKNOWN INDICATION
  5. COQ10 [Concomitant]
     Indication: DRUG USE FOR UNKNOWN INDICATION
  6. VIT B 12 [Concomitant]
     Indication: DRUG USE FOR UNKNOWN INDICATION
  7. ALEVE [Concomitant]
     Indication: DRUG USE FOR UNKNOWN INDICATION
  8. METOPROLOL [Concomitant]
     Indication: DRUG USE FOR UNKNOWN INDICATION
  9. ASCORBIC ACID [Concomitant]
     Indication: DRUG USE FOR UNKNOWN INDICATION
  10. CALCIUM WITH VITAMIN D [Concomitant]
     Indication: DRUG USE FOR UNKNOWN INDICATION

REACTIONS (3)
  - FLUSHING [None]
  - HEADACHE [None]
  - PRURITUS [None]
